FAERS Safety Report 6285911-7 (Version None)
Quarter: 2009Q3

REPORT INFORMATION
  Report Type: 
  Country: None (occurrence: None)
  Receive Date: 20090728
  Receipt Date: 20090713
  Transmission Date: 20100115
  Serious: Yes (Hospitalization)
  Sender: FDA-Public Use
  Company Number: JP-EISAI INC.-E3810-02995-CLI-JP

PATIENT
  Sex: Male
  Weight: 83 kg

DRUGS (10)
  1. RABEPRAZOLE SODIUM [Suspect]
     Indication: REFLUX OESOPHAGITIS
     Dosage: BLINDED DOSE
     Route: 048
     Dates: start: 20090619, end: 20090709
  2. RENIVACE [Concomitant]
     Indication: HYPERTENSION
     Route: 048
  3. LIPITOR [Concomitant]
     Indication: DYSLIPIDAEMIA
     Route: 048
  4. ASPIRIN [Concomitant]
     Route: 048
  5. LASIX [Concomitant]
     Route: 048
  6. ALOSITOL [Concomitant]
     Route: 048
  7. KALIMATE [Concomitant]
     Route: 048
  8. FRANDOL [Concomitant]
     Route: 048
  9. HUMALOG MIX [Concomitant]
     Indication: DIABETES MELLITUS
     Dosage: UNKNOWN
  10. VENCOLL [Concomitant]
     Indication: CONSTIPATION
     Route: 048

REACTIONS (1)
  - CARDIAC FAILURE [None]
